FAERS Safety Report 14818918 (Version 1)
Quarter: 2018Q2

REPORT INFORMATION
  Report Type: Spontaneous
  Country: US (occurrence: US)
  Receive Date: 20180417
  Receipt Date: 20180417
  Transmission Date: 20180711
  Serious: Yes (Other)
  Sender: FDA-Public Use
  Company Number: None

PATIENT
  Age: 70 Year
  Sex: Female
  Weight: 73.35 kg

DRUGS (12)
  1. LEVOTHYROXINE. [Concomitant]
     Active Substance: LEVOTHYROXINE
  2. CALCIUM [Concomitant]
     Active Substance: CALCIUM
  3. LOW DOSE ASPIRIN [Suspect]
     Active Substance: ASPIRIN
     Indication: CEREBROVASCULAR ACCIDENT
     Dosage: ?          QUANTITY:300 TABLET(S);?
     Route: 048
     Dates: start: 20180101, end: 20180407
  4. IRBESARTAN. [Concomitant]
     Active Substance: IRBESARTAN
  5. PRAVASTATIN. [Concomitant]
     Active Substance: PRAVASTATIN
  6. BACLOFEN. [Concomitant]
     Active Substance: BACLOFEN
  7. PROZAC [Concomitant]
     Active Substance: FLUOXETINE HYDROCHLORIDE
  8. GABAPENTIN. [Concomitant]
     Active Substance: GABAPENTIN
  9. CLONIDINE PATCH [Suspect]
     Active Substance: CLONIDINE
  10. CLONAZEPIN [Concomitant]
  11. AMLODIPEN [Concomitant]
  12. VITAMIN D [Concomitant]
     Active Substance: CHOLECALCIFEROL

REACTIONS (2)
  - Tinnitus [None]
  - Head discomfort [None]

NARRATIVE: CASE EVENT DATE: 20180416
